FAERS Safety Report 23916514 (Version 1)
Quarter: 2024Q2

REPORT INFORMATION
  Report Type: Spontaneous
  Country: US (occurrence: None)
  Receive Date: 20240529
  Receipt Date: 20240529
  Transmission Date: 20240716
  Serious: No
  Sender: FDA-Public Use
  Company Number: None

PATIENT
  Age: 84 Year
  Sex: Female
  Weight: 81.65 kg

DRUGS (1)
  1. VTAMA [Suspect]
     Active Substance: TAPINAROF
     Indication: Psoriasis
     Dosage: OTHER QUANTITY : APPLY TO HANDS/ARM;?FREQUENCY : DAILY;?
     Route: 061
     Dates: start: 202401

REACTIONS (2)
  - Hospitalisation [None]
  - Therapy interrupted [None]
